FAERS Safety Report 20670259 (Version 4)
Quarter: 2022Q2

REPORT INFORMATION
  Report Type: Spontaneous
  Country: FR (occurrence: FR)
  Receive Date: 20220404
  Receipt Date: 20220506
  Transmission Date: 20220721
  Serious: Yes (Other)
  Sender: FDA-Public Use
  Company Number: None

PATIENT
  Age: 53 Year
  Sex: Female
  Weight: 110 kg

DRUGS (11)
  1. SPRAVATO [Suspect]
     Active Substance: ESKETAMINE
     Indication: Major depression
     Dosage: FIRST ADMINISTRATION
     Dates: start: 20210729, end: 20210729
  2. SPRAVATO [Suspect]
     Active Substance: ESKETAMINE
     Dosage: SECOND ADMINISTRATION
     Dates: start: 20210802, end: 20210802
  3. SPRAVATO [Suspect]
     Active Substance: ESKETAMINE
     Dosage: THIRD ADMINISTRATION
     Dates: start: 20210804, end: 20210804
  4. SPRAVATO [Suspect]
     Active Substance: ESKETAMINE
     Dosage: FOURTH ADMINISTRATION
     Dates: start: 20210811, end: 20210811
  5. SPRAVATO [Suspect]
     Active Substance: ESKETAMINE
     Dosage: FIFTH ADMINISTRATION
     Dates: start: 20210818, end: 20210818
  6. FENOFIBRATE [Concomitant]
     Active Substance: FENOFIBRATE
     Indication: Dyslipidaemia
     Route: 048
  7. FLUOXETINE HYDROCHLORIDE [Concomitant]
     Active Substance: FLUOXETINE HYDROCHLORIDE
     Indication: Depression
     Dosage: 20 MG, 2/DAY
     Route: 048
     Dates: start: 20210727
  8. IRBESARTAN [Concomitant]
     Active Substance: IRBESARTAN
     Indication: Hypertension
     Route: 048
  9. MIRTAZAPINE [Concomitant]
     Active Substance: MIRTAZAPINE
     Indication: Depression
     Route: 048
  10. DIAZEPAM [Concomitant]
     Active Substance: DIAZEPAM
     Indication: Anxiety
     Dosage: 10 MG, 1-1-1
     Route: 048
  11. CYAMEMAZINE [Concomitant]
     Active Substance: CYAMEMAZINE
     Indication: Anxiety
     Dosage: 25 MG, 1-1-1
     Route: 048

REACTIONS (5)
  - Hallucination [Recovered/Resolved]
  - Oxygen saturation decreased [Recovered/Resolved]
  - Somnolence [Recovered/Resolved]
  - Nausea [Recovered/Resolved]
  - Anxiety [Recovered/Resolved]

NARRATIVE: CASE EVENT DATE: 20210729
